FAERS Safety Report 23847888 (Version 1)
Quarter: 2024Q2

REPORT INFORMATION
  Report Type: Spontaneous
  Country: GB (occurrence: GB)
  Receive Date: 20240513
  Receipt Date: 20240513
  Transmission Date: 20240716
  Serious: Yes (Hospitalization, Other)
  Sender: FDA-Public Use
  Company Number: GB-SUN PHARMACEUTICAL INDUSTRIES LTD-2024R1-445623

PATIENT
  Age: 73 Year
  Sex: Male

DRUGS (3)
  1. SUNITINIB [Suspect]
     Active Substance: SUNITINIB
     Indication: Metastatic renal cell carcinoma
     Dosage: THE FIRST TREATMENT CYCLE,
     Route: 065
  2. SUNITINIB [Suspect]
     Active Substance: SUNITINIB
     Indication: Metastases to lung
     Dosage: 12 CYCLES OF TREATMENT
     Route: 065
  3. SUNITINIB [Suspect]
     Active Substance: SUNITINIB
     Dosage: AT 18 MONTHS, THE DOSAGE WAS INCREASED
     Route: 065

REACTIONS (5)
  - Aspergillus infection [Recovering/Resolving]
  - Condition aggravated [Recovering/Resolving]
  - Dyspnoea exertional [Recovering/Resolving]
  - Haemoptysis [Recovering/Resolving]
  - Renal failure [Recovering/Resolving]
